FAERS Safety Report 8510099-9 (Version None)
Quarter: 2012Q3

REPORT INFORMATION
  Report Type: 
  Country: None (occurrence: None)
  Receive Date: 20120713
  Receipt Date: 20120710
  Transmission Date: 20120928
  Serious: No
  Sender: FDA-Public Use
  Company Number: US-PFIZER INC-2012165631

PATIENT
  Sex: Female
  Weight: 68.027 kg

DRUGS (2)
  1. LEVOXYL [Suspect]
     Dosage: 137 UG, 1X/DAY
     Route: 048
     Dates: start: 20101001, end: 20120301
  2. LEVOXYL [Suspect]
     Indication: BASEDOW'S DISEASE
     Dosage: 150 UG, 1X/DAY
     Route: 048
     Dates: start: 20060101

REACTIONS (2)
  - THYROID FUNCTION TEST ABNORMAL [None]
  - BLOOD CHOLESTEROL INCREASED [None]
